FAERS Safety Report 25795192 (Version 1)
Quarter: 2025Q3

REPORT INFORMATION
  Report Type: Other
  Country: CA (occurrence: CA)
  Receive Date: 20250912
  Receipt Date: 20250912
  Transmission Date: 20251021
  Serious: Yes (Death, Other)
  Sender: PFIZER
  Company Number: CA-PFIZER INC-202500179532

PATIENT
  Age: 77 Year
  Sex: Male

DRUGS (7)
  1. METHOTREXATE SODIUM [Suspect]
     Active Substance: METHOTREXATE SODIUM
     Indication: Myelodysplastic syndrome
     Route: 058
  2. TOFACITINIB CITRATE [Suspect]
     Active Substance: TOFACITINIB CITRATE
     Indication: Myelodysplastic syndrome
     Dosage: 5 MG, 2 EVERY 1 DAY
     Route: 065
  3. AZATHIOPRINE [Suspect]
     Active Substance: AZATHIOPRINE
     Indication: Myelodysplastic syndrome
     Dosage: 150 MG, 1 EVERY 1 DAY
     Route: 065
  4. CYCLOSPORINE [Suspect]
     Active Substance: CYCLOSPORINE
     Indication: Myelodysplastic syndrome
     Dosage: 2.5 MG/KG, 1 EVERY 1 DAY
     Route: 065
  5. KEVZARA [Suspect]
     Active Substance: SARILUMAB
     Indication: Myelodysplastic syndrome
     Route: 058
  6. MYCOPHENOLATE MOFETIL [Suspect]
     Active Substance: MYCOPHENOLATE MOFETIL
     Indication: Myelodysplastic syndrome
     Dosage: 1.5 G, 2 EVERY 1 DAY
     Route: 065
  7. PREDNISONE [Suspect]
     Active Substance: PREDNISONE
     Indication: Myelodysplastic syndrome
     Route: 065

REACTIONS (6)
  - COVID-19 pneumonia [Fatal]
  - Mycobacterium chelonae infection [Fatal]
  - Pneumonia [Fatal]
  - Off label use [Fatal]
  - Drug ineffective for unapproved indication [Fatal]
  - Off label use [Unknown]
